FAERS Safety Report 7605931-7 (Version None)
Quarter: 2011Q3

REPORT INFORMATION
  Report Type: 
  Country: None (occurrence: None)
  Receive Date: 20110713
  Receipt Date: 20110628
  Transmission Date: 20111222
  Serious: Yes (Other)
  Sender: FDA-Public Use
  Company Number: PHHY2011FR58345

PATIENT
  Sex: Female

DRUGS (2)
  1. VALSARTAN  AND HYDROCHLOROTHIAZIDE [Suspect]
     Indication: HYPERTENSION
     Dosage: 1 DF (160 MG OF VALS AND 25 MG OF HYDR) PER DAY
     Route: 048
     Dates: start: 20080101
  2. PRAVASTATIN [Concomitant]
     Dosage: UNK
     Route: 048
     Dates: start: 20101201

REACTIONS (5)
  - SKIN LESION [None]
  - VAGINAL LESION [None]
  - PRURITUS [None]
  - ECZEMA WEEPING [None]
  - DERMATITIS BULLOUS [None]
